FAERS Safety Report 21737668 (Version 2)
Quarter: 2022Q4

REPORT INFORMATION
  Report Type: Spontaneous
  Country: US (occurrence: US)
  Receive Date: 20221216
  Receipt Date: 20221222
  Transmission Date: 20230113
  Serious: Yes (Hospitalization, Other)
  Sender: FDA-Public Use
  Company Number: US-AUROBINDO-AUR-APL-2022-045683

PATIENT
  Age: 21 Year
  Sex: Female
  Weight: 68 kg

DRUGS (15)
  1. CLOZAPINE [Suspect]
     Active Substance: CLOZAPINE
     Indication: Product used for unknown indication
     Dosage: UNK (150 MG IN THE MORNING AND 400 MG AT BEDTIME)
     Route: 048
     Dates: start: 20220516
  2. CLOZAPINE [Suspect]
     Active Substance: CLOZAPINE
     Indication: Product used for unknown indication
     Dosage: UNK (150 MG IN THE MORNING AND 400 MG AT BEDTIME)
     Route: 048
     Dates: start: 20220516
  3. CLOZAPINE [Suspect]
     Active Substance: CLOZAPINE
     Indication: Product used for unknown indication
     Dosage: UNK (150 MG IN THE MORNING AND 400 MG AT BEDTIME)
     Route: 048
     Dates: start: 20220516
  4. ACETAMINOPHEN [Concomitant]
     Active Substance: ACETAMINOPHEN
     Indication: Pain
     Dosage: UNK, FOUR TIMES/DAY
     Route: 065
     Dates: start: 20220329, end: 20220922
  5. BENZTROPINE [Concomitant]
     Active Substance: BENZTROPINE
     Indication: Dystonia
     Dosage: UNK, FOUR TIMES/DAY
     Route: 065
     Dates: start: 20220329, end: 20220922
  6. CHLORPHENIRAMINE MALEATE [Concomitant]
     Active Substance: CHLORPHENIRAMINE MALEATE
     Indication: Anxiety
     Dosage: UNK, EVERY FOUR HOUR
     Route: 065
     Dates: start: 20220406, end: 20220922
  7. FAMOTIDINE [Concomitant]
     Active Substance: FAMOTIDINE
     Indication: Gastritis
     Dosage: UNK, TWO TIMES A DAY
     Route: 065
     Dates: start: 20220330, end: 20220922
  8. FLUVOXAMINE [Concomitant]
     Active Substance: FLUVOXAMINE
     Indication: Depression
     Dosage: UNK, ONCE A DAY
     Route: 065
     Dates: start: 20220330, end: 20220420
  9. HALOPERIDOL [Concomitant]
     Active Substance: HALOPERIDOL
     Indication: Aggression
     Dosage: UNK, FOUR TIMES/DAY
     Route: 065
     Dates: start: 20220329, end: 20220922
  10. HALOPERIDOL [Concomitant]
     Active Substance: HALOPERIDOL
     Indication: Psychotic disorder
  11. IBUPROFEN [Concomitant]
     Active Substance: IBUPROFEN
     Indication: Pain
     Dosage: UNK, FOUR TIMES/DAY
     Route: 065
     Dates: start: 20220818, end: 20220922
  12. LITHIUM [Concomitant]
     Active Substance: LITHIUM
     Indication: Affective disorder
     Dosage: UNK, TWO TIMES A DAY
     Route: 065
     Dates: start: 20220330, end: 20220922
  13. LORAZEPAM [Concomitant]
     Active Substance: LORAZEPAM
     Indication: Agitation
     Dosage: UNK, FOUR TIMES/DAY
     Route: 065
     Dates: start: 20220329, end: 20220922
  14. SEROQUEL [Concomitant]
     Active Substance: QUETIAPINE FUMARATE
     Indication: Psychotic disorder
     Dosage: UNK
     Route: 065
     Dates: start: 20220330, end: 20220804
  15. ZOLPIDEM [Concomitant]
     Active Substance: ZOLPIDEM TARTRATE
     Indication: Sleep disorder
     Dosage: UNK
     Route: 065
     Dates: start: 20220329, end: 20220922

REACTIONS (2)
  - Schizophrenia [Recovered/Resolved]
  - Seizure [Recovered/Resolved]

NARRATIVE: CASE EVENT DATE: 20220922
